FAERS Safety Report 16371657 (Version 1)
Quarter: 2019Q2

REPORT INFORMATION
  Report Type: Report from Study
  Country: US (occurrence: US)
  Receive Date: 20190530
  Receipt Date: 20190530
  Transmission Date: 20190711
  Serious: Yes (Other)
  Sender: FDA-Public Use
  Company Number: PHEH2019US022780

PATIENT
  Sex: Female

DRUGS (1)
  1. VIGAMOXI [Suspect]
     Active Substance: MOXIFLOXACIN
     Indication: PRODUCT USED FOR UNKNOWN INDICATION
     Dosage: UNK
     Route: 065

REACTIONS (3)
  - Fibromyalgia [Unknown]
  - Autoimmune disorder [Unknown]
  - Fatigue [Unknown]
